FAERS Safety Report 15736737 (Version 1)
Quarter: 2018Q4

REPORT INFORMATION
  Report Type: Spontaneous
  Country: PT (occurrence: PT)
  Receive Date: 20181218
  Receipt Date: 20181218
  Transmission Date: 20190205
  Serious: Yes (Other)
  Sender: FDA-Public Use
  Company Number: PT-PFIZER INC-2018516006

PATIENT
  Sex: Female

DRUGS (9)
  1. ZOLEDRONIC ACID [Suspect]
     Active Substance: ZOLEDRONIC ACID
     Dosage: UNK
     Route: 065
     Dates: start: 20181030
  2. PERTUZUMAB. [Suspect]
     Active Substance: PERTUZUMAB
     Route: 042
     Dates: start: 20181030
  3. PERTUZUMAB. [Suspect]
     Active Substance: PERTUZUMAB
     Indication: HER-2 POSITIVE BREAST CANCER
     Dosage: UNK
     Route: 042
     Dates: start: 20180626, end: 20181009
  4. DOCETAXEL. [Suspect]
     Active Substance: DOCETAXEL
     Indication: HER-2 POSITIVE BREAST CANCER
     Route: 065
     Dates: start: 20180626, end: 20181009
  5. TRASTUZUMAB. [Suspect]
     Active Substance: TRASTUZUMAB
     Indication: HER-2 POSITIVE BREAST CANCER
     Dosage: UNK
     Route: 058
     Dates: start: 20180626, end: 20181009
  6. TRASTUZUMAB. [Suspect]
     Active Substance: TRASTUZUMAB
     Dosage: UNK
     Route: 058
     Dates: start: 20181030
  7. TAMOXIFEN [Suspect]
     Active Substance: TAMOXIFEN
     Indication: HER-2 POSITIVE BREAST CANCER
     Route: 065
     Dates: start: 20181030
  8. ZOLEDRONIC ACID [Suspect]
     Active Substance: ZOLEDRONIC ACID
     Indication: HER-2 POSITIVE BREAST CANCER
     Route: 065
     Dates: start: 20180626, end: 20181009
  9. GOSERELIN [Suspect]
     Active Substance: GOSERELIN
     Indication: HER-2 POSITIVE BREAST CANCER
     Route: 065
     Dates: start: 20181030

REACTIONS (4)
  - Diarrhoea [Recovered/Resolved]
  - Oedema peripheral [Recovered/Resolved]
  - Lacrimation increased [Recovered/Resolved]
  - Pleural effusion [Unknown]
